FAERS Safety Report 7466103-2 (Version None)
Quarter: 2011Q2

REPORT INFORMATION
  Report Type: 
  Country: None (occurrence: None)
  Receive Date: 20110509
  Receipt Date: 20100621
  Transmission Date: 20111010
  Serious: No
  Sender: FDA-Public Use
  Company Number: US-ALEXION-A201000725

PATIENT
  Sex: Female

DRUGS (2)
  1. SOLIRIS [Suspect]
     Indication: PAROXYSMAL NOCTURNAL HAEMOGLOBINURIA
     Dosage: 600 MG X4
     Route: 042
     Dates: start: 20090803
  2. SOLIRIS [Suspect]
     Dosage: 900 MG, Q2WKS
     Route: 042

REACTIONS (1)
  - SYNCOPE [None]
